FAERS Safety Report 7075288-1 (Version None)
Quarter: 2010Q4

REPORT INFORMATION
  Report Type: 
  Country: None (occurrence: None)
  Receive Date: 20101030
  Receipt Date: 20100728
  Transmission Date: 20110411
  Serious: No
  Sender: FDA-Public Use
  Company Number: US-WYE-H16735310

PATIENT
  Sex: Female

DRUGS (1)
  1. TYGACIL [Suspect]
     Dates: start: 20100101

REACTIONS (2)
  - NAUSEA [None]
  - VOMITING [None]
